FAERS Safety Report 7486123-1 (Version None)
Quarter: 2011Q2

REPORT INFORMATION
  Report Type: 
  Country: None (occurrence: None)
  Receive Date: 20110517
  Receipt Date: 20110505
  Transmission Date: 20111010
  Serious: Yes (Other)
  Sender: FDA-Public Use
  Company Number: PL-UCBSA-032338

PATIENT
  Age: 30 Year
  Sex: Male

DRUGS (3)
  1. LAMOTRIGINE [Concomitant]
  2. KEPPRA [Suspect]
     Dosage: DOSE REDUCED
  3. KEPPRA [Suspect]
     Indication: EPILEPSY
     Dosage: 3X500 MG AND 1.000 MG
     Route: 048
     Dates: start: 20101201

REACTIONS (4)
  - HALLUCINATION [None]
  - ANXIETY DISORDER [None]
  - ABNORMAL BEHAVIOUR [None]
  - CONVULSION [None]
